FAERS Safety Report 4470412-9 (Version None)
Quarter: 2004Q3

REPORT INFORMATION
  Report Type: 
  Country: None (occurrence: None)
  Receive Date: 20040910
  Receipt Date: 20040527
  Transmission Date: 20050211
  Serious: No
  Sender: FDA-Public Use
  Company Number: M04-341-164

PATIENT
  Age: 48 Year
  Sex: Female
  Weight: 61.7 kg

DRUGS (1)
  1. VELCADE [Suspect]
     Dosage: 2.20 MG, SINGLE, SUBCUTANEOUS
     Route: 058
     Dates: start: 20040521, end: 20040521

REACTIONS (1)
  - MEDICATION ERROR [None]
